FAERS Safety Report 13855492 (Version 1)
Quarter: 2017Q3

REPORT INFORMATION
  Report Type: Spontaneous
  Country: US (occurrence: US)
  Receive Date: 20170810
  Receipt Date: 20170810
  Transmission Date: 20171127
  Serious: Yes (Death, Other)
  Sender: FDA-Public Use
  Company Number: US-BAUSCH-BL-2017-023324

PATIENT
  Age: 4 Week
  Sex: Female

DRUGS (2)
  1. CASTELLANI PAINT [Suspect]
     Active Substance: PHENOL
     Indication: SEBORRHOEIC DERMATITIS
     Route: 065
  2. NYSTATIN. [Suspect]
     Active Substance: NYSTATIN
     Indication: SEBORRHOEIC DERMATITIS
     Route: 065

REACTIONS (7)
  - Pulmonary oedema [None]
  - Visceral congestion [None]
  - Toxicity to various agents [Fatal]
  - Wrong technique in product usage process [Unknown]
  - Seizure [Unknown]
  - Listless [Unknown]
  - Drug ineffective [Unknown]
